FAERS Safety Report 8240715-0 (Version None)
Quarter: 2012Q1

REPORT INFORMATION
  Report Type: 
  Country: None (occurrence: None)
  Receive Date: 20120328
  Receipt Date: 20120326
  Transmission Date: 20120608
  Serious: Yes (Other)
  Sender: FDA-Public Use
  Company Number: US-PFIZER INC-2012077887

PATIENT
  Sex: Female
  Weight: 59 kg

DRUGS (1)
  1. CHANTIX [Suspect]
     Indication: SMOKING CESSATION THERAPY
     Dosage: 0.5 MG, 1X/DAY
     Route: 048

REACTIONS (9)
  - INFLUENZA [None]
  - LUNG DISORDER [None]
  - PNEUMONIA [None]
  - CHEST PAIN [None]
  - DIARRHOEA [None]
  - COUGH [None]
  - BRONCHITIS [None]
  - MALAISE [None]
  - INSOMNIA [None]
